FAERS Safety Report 10966131 (Version 1)
Quarter: 2015Q1

REPORT INFORMATION
  Report Type: Spontaneous
  Country: IT (occurrence: IT)
  Receive Date: 20150330
  Receipt Date: 20150330
  Transmission Date: 20150721
  Serious: Yes (Hospitalization)
  Sender: FDA-Public Use
  Company Number: IT-SA-2015SA038951

PATIENT
  Sex: Male

DRUGS (7)
  1. ENALAPRIL [Concomitant]
     Active Substance: ENALAPRIL
     Indication: ATRIAL FIBRILLATION
  2. BISOPROLOL HEMIFUMARATE [Concomitant]
     Active Substance: BISOPROLOL FUMARATE
     Indication: ATRIAL FIBRILLATION
  3. CIPROFLOXACIN. [Concomitant]
     Active Substance: CIPROFLOXACIN
     Indication: BRONCHITIS
     Dates: start: 20120216
  4. GLIBENCLAMIDE [Suspect]
     Active Substance: GLYBURIDE
     Indication: TYPE 2 DIABETES MELLITUS
     Route: 048
  5. LUVION [Concomitant]
     Active Substance: CANRENONE
     Dosage: (POTASSIUM CANRENOATE) 50 MG TABLET, 40 TABLETS.
  6. METFORMIN HYDROCHLORIDE. [Suspect]
     Active Substance: METFORMIN HYDROCHLORIDE
     Indication: TYPE 2 DIABETES MELLITUS
     Route: 048
  7. VALSARTAN. [Concomitant]
     Active Substance: VALSARTAN
     Indication: ATRIAL FIBRILLATION

REACTIONS (3)
  - Dyspnoea [Recovering/Resolving]
  - Hypoglycaemia [Recovering/Resolving]
  - Apraxia [Recovering/Resolving]

NARRATIVE: CASE EVENT DATE: 20120220
